FAERS Safety Report 9919309 (Version 1)
Quarter: 2014Q1

REPORT INFORMATION
  Report Type: Spontaneous
  Country: US (occurrence: US)
  Receive Date: 20140224
  Receipt Date: 20140224
  Transmission Date: 20141002
  Serious: Yes (Hospitalization, Other)
  Sender: FDA-Public Use
  Company Number: US-SA-2014SA021649

PATIENT
  Age: 95 Year
  Sex: Male

DRUGS (2)
  1. LANTUS SOLOSTAR [Suspect]
     Indication: TYPE 2 DIABETES MELLITUS
     Dosage: FROM: 3 MONTHS DOSE:5 UNIT(S)
     Route: 058
  2. SOLOSTAR [Concomitant]

REACTIONS (5)
  - Atrial fibrillation [Unknown]
  - Retroperitoneal haemorrhage [Unknown]
  - Cardiac failure congestive [Unknown]
  - Clostridium difficile infection [Unknown]
  - Hypoacusis [Unknown]
